FAERS Safety Report 25123532 (Version 1)
Quarter: 2025Q1

REPORT INFORMATION
  Report Type: Spontaneous
  Country: US (occurrence: US)
  Receive Date: 20250326
  Receipt Date: 20250326
  Transmission Date: 20250408
  Serious: No
  Sender: GRIFOLS
  Company Number: US-IGSA-BIG0032182

PATIENT
  Sex: Male
  Weight: 70.93 kg

DRUGS (8)
  1. PROLASTIN-C LIQUID [Suspect]
     Active Substance: .ALPHA.1-PROTEINASE INHIBITOR HUMAN
     Indication: Alpha-1 antitrypsin deficiency
     Dosage: 8154 MILLIGRAM, Q.WK.
     Route: 042
  2. LENVIMA [Concomitant]
     Active Substance: LENVATINIB
  3. FLUTICASONE PROPIONATE [Concomitant]
     Active Substance: FLUTICASONE PROPIONATE
  4. OXYCODONE HYDROCHLORIDE [Concomitant]
     Active Substance: OXYCODONE HYDROCHLORIDE
  5. SPIRONOLACTONE [Concomitant]
     Active Substance: SPIRONOLACTONE
  6. SOFOSBUVIR AND VELPATASVIR [Concomitant]
     Active Substance: SOFOSBUVIR\VELPATASVIR
  7. CALCIUM PHOSPHATE, DIBASIC, ANHYDROUS\ERGOCALCIFEROL [Concomitant]
     Active Substance: CALCIUM PHOSPHATE, DIBASIC, ANHYDROUS\ERGOCALCIFEROL
  8. FUROSEMIDE ACCORD [FUROSEMIDE SODIUM] [Concomitant]

REACTIONS (1)
  - Drug ineffective [Unknown]
